FAERS Safety Report 24822711 (Version 1)
Quarter: 2025Q1

REPORT INFORMATION
  Report Type: Spontaneous
  Country: IN (occurrence: IN)
  Receive Date: 20250109
  Receipt Date: 20250109
  Transmission Date: 20250409
  Serious: Yes (Other)
  Sender: SANDOZ
  Company Number: IN-002147023-NVSC2025IN001527

PATIENT
  Age: 65 Year
  Sex: Male

DRUGS (3)
  1. MYFORTIC [Suspect]
     Active Substance: MYCOPHENOLATE SODIUM
     Indication: Renal transplant
     Dosage: 720 MG, BID
     Route: 048
  2. TACROLIMUS [Suspect]
     Active Substance: TACROLIMUS
     Indication: Renal transplant
     Dosage: 0.5 MG, BIW
     Route: 048
  3. DENOSUMAB [Concomitant]
     Active Substance: DENOSUMAB
     Indication: Product used for unknown indication
     Route: 065
     Dates: start: 20241209

REACTIONS (17)
  - Ischaemic stroke [Unknown]
  - Lacunar infarction [Unknown]
  - Paralysis [Unknown]
  - Osteomyelitis [Unknown]
  - Diabetes mellitus [Unknown]
  - Hypertensive heart disease [Unknown]
  - Dyslipidaemia [Unknown]
  - Coronary artery disease [Unknown]
  - Visual impairment [Unknown]
  - Abscess limb [Unknown]
  - Erythema [Unknown]
  - Paronychia [Unknown]
  - Onychomycosis [Unknown]
  - Ataxia [Unknown]
  - Phlebitis [Unknown]
  - Vision blurred [Unknown]
  - Hypertension [Unknown]

NARRATIVE: CASE EVENT DATE: 20080101
